FAERS Safety Report 24955269 (Version 2)
Quarter: 2025Q1

REPORT INFORMATION
  Report Type: Report from Study
  Country: CA (occurrence: CA)
  Receive Date: 20250211
  Receipt Date: 20250319
  Transmission Date: 20250409
  Serious: Yes (Other)
  Sender: TAKEDA
  Company Number: CA-TAKEDA-2025TUS012560

PATIENT
  Sex: Female

DRUGS (4)
  1. VEDOLIZUMAB [Suspect]
     Active Substance: VEDOLIZUMAB
     Indication: Colitis ulcerative
  2. VEDOLIZUMAB [Suspect]
     Active Substance: VEDOLIZUMAB
  3. PREDNISONE [Concomitant]
     Active Substance: PREDNISONE
  4. MESALAMINE [Concomitant]
     Active Substance: MESALAMINE

REACTIONS (8)
  - Haematochezia [Unknown]
  - Rectal haemorrhage [Unknown]
  - Abnormal faeces [Unknown]
  - Anal haemorrhage [Unknown]
  - Mucous stools [Unknown]
  - Gastrointestinal inflammation [Unknown]
  - Abdominal pain [Unknown]
  - Constipation [Unknown]
